FAERS Safety Report 6852044-8 (Version None)
Quarter: 2010Q3

REPORT INFORMATION
  Report Type: 
  Country: None (occurrence: None)
  Receive Date: 20100717
  Receipt Date: 20071106
  Transmission Date: 20110219
  Serious: No
  Sender: FDA-Public Use
  Company Number: US-PFIZER INC-2007094762

PATIENT
  Age: 50 Year
  Sex: Female
  Weight: 63.5 kg

DRUGS (5)
  1. CHANTIX [Suspect]
     Indication: SMOKING CESSATION THERAPY
     Dates: start: 20071001, end: 20071103
  2. RISPERDAL [Concomitant]
     Indication: MENTAL DISORDER
  3. DIVIGEL [Concomitant]
     Indication: ENDOCRINE DISORDER
  4. PROMETRIUM [Concomitant]
     Indication: ENDOCRINE DISORDER
  5. TYLENOL PM [Concomitant]

REACTIONS (3)
  - ABDOMINAL PAIN [None]
  - MALAISE [None]
  - SWELLING [None]
